APPROVED DRUG PRODUCT: TRUPHYLLINE
Active Ingredient: AMINOPHYLLINE
Strength: 500MG
Dosage Form/Route: SUPPOSITORY;RECTAL
Application: A085498 | Product #002
Applicant: COSETTE PHARMACEUTICALS INC
Approved: Jan 3, 1983 | RLD: No | RS: No | Type: DISCN